FAERS Safety Report 18945633 (Version 1)
Quarter: 2021Q1

REPORT INFORMATION
  Report Type: Spontaneous
  Country: US (occurrence: US)
  Receive Date: 20210226
  Receipt Date: 20210226
  Transmission Date: 20210420
  Serious: Yes (Other)
  Sender: FDA-Public Use
  Company Number: US-MYLANLABS-2021M1011479

PATIENT
  Age: 30 Year
  Sex: Female

DRUGS (2)
  1. TESTOSTERONE. [Suspect]
     Active Substance: TESTOSTERONE
     Indication: GENDER DYSPHORIA
     Dosage: 140 MILLIGRAM, QW
     Route: 030
  2. TESTOSTERONE. [Suspect]
     Active Substance: TESTOSTERONE
     Indication: HORMONE THERAPY
     Dosage: 100 MILLIGRAM, QW
     Route: 030

REACTIONS (2)
  - Hidradenitis [Recovering/Resolving]
  - Acne [Recovering/Resolving]
